FAERS Safety Report 9646534 (Version 9)
Quarter: 2014Q3

REPORT INFORMATION
  Report Type: Report from Study
  Country: PT (occurrence: PT)
  Receive Date: 20131025
  Receipt Date: 20140815
  Transmission Date: 20150326
  Serious: Yes (Hospitalization)
  Sender: FDA-Public Use
  Company Number: PT-ROCHE-1286293

PATIENT
  Age: 72 Year
  Sex: Female
  Weight: 66 kg

DRUGS (27)
  1. PERTUZUMAB [Suspect]
     Active Substance: PERTUZUMAB
     Indication: HER-2 POSITIVE BREAST CANCER
     Dosage: LAST DOSE PRIOR TO SAE WAS 12/SEP/2013
     Route: 042
     Dates: start: 20130912, end: 20130912
  2. MIANSERINE [Concomitant]
     Active Substance: MIANSERIN HYDROCHLORIDE
     Route: 065
     Dates: start: 2005
  3. TOLVON [Concomitant]
     Active Substance: MIANSERIN
     Dosage: TOTAL DAILY DOSE: 30MG/ID.
     Route: 065
     Dates: start: 2005, end: 20140102
  4. LOPERAMIDE [Concomitant]
     Active Substance: LOPERAMIDE
     Route: 065
     Dates: start: 20140425, end: 20140428
  5. MIRTAZAPINE. [Concomitant]
     Active Substance: MIRTAZAPINE
     Dosage: ID
     Route: 065
     Dates: start: 20131128, end: 20131130
  6. MEXAZOLAM [Concomitant]
     Active Substance: MEXAZOLAM
     Dosage: ID
     Route: 065
     Dates: start: 20131128, end: 20131130
  7. ZOLPIDEM [Concomitant]
     Active Substance: ZOLPIDEM\ZOLPIDEM TARTRATE
     Dosage: ID
     Route: 065
     Dates: start: 20131128, end: 20131130
  8. PANTOPRAZOLE [Concomitant]
     Active Substance: PANTOPRAZOLE SODIUM
     Dosage: ID
     Route: 065
     Dates: start: 20131105
  9. TRASTUZUMAB [Suspect]
     Active Substance: TRASTUZUMAB
     Indication: HER-2 POSITIVE BREAST CANCER
     Dosage: LOADING DOSE
     Route: 042
     Dates: start: 20130912, end: 20130912
  10. BLOOD TRANSFUSION [Concomitant]
     Active Substance: WHOLE BLOOD
     Dosage: 1 UNIT
     Route: 065
     Dates: start: 20140516, end: 20140516
  11. DOCETAXEL [Suspect]
     Active Substance: DOCETAXEL
     Indication: HER-2 POSITIVE BREAST CANCER
     Route: 042
     Dates: start: 20130913, end: 20131014
  12. LOPERAMIDE [Concomitant]
     Active Substance: LOPERAMIDE
     Route: 065
     Dates: start: 20140517, end: 20140519
  13. CIPROFLOXACIN. [Concomitant]
     Active Substance: CIPROFLOXACIN
     Route: 065
     Dates: start: 20140628, end: 20140704
  14. DOCETAXEL [Suspect]
     Active Substance: DOCETAXEL
     Dosage: LAST DOSE PRIOR TO SAE WAS: 14/OCT/2013
     Route: 042
     Dates: start: 20131014, end: 20131105
  15. FLUIMICIL [Concomitant]
     Route: 065
     Dates: start: 20131213, end: 20131218
  16. CIPROFLOXACIN. [Concomitant]
     Active Substance: CIPROFLOXACIN
     Route: 065
     Dates: start: 20131220, end: 20131227
  17. PERTUZUMAB [Suspect]
     Active Substance: PERTUZUMAB
     Dosage: MAINTENENCE DOSE,
     Route: 042
     Dates: start: 20131003, end: 20131105
  18. FOSAVANCE [Concomitant]
     Active Substance: ALENDRONATE SODIUM\CHOLECALCIFEROL
     Dosage: TOTAL DAILY DOSE: 70MG/ID.
     Route: 065
     Dates: start: 2010
  19. LOPERAMIDE [Concomitant]
     Active Substance: LOPERAMIDE
     Route: 065
     Dates: start: 20140405, end: 20140407
  20. AZITHROMYCIN [Concomitant]
     Active Substance: AZITHROMYCIN ANHYDROUS
     Route: 065
     Dates: start: 20131213, end: 20131215
  21. NITROFURANTOINA [Concomitant]
     Route: 065
     Dates: start: 20140620, end: 20140625
  22. TRASTUZUMAB [Suspect]
     Active Substance: TRASTUZUMAB
     Dosage: MAINTENENCE DOSE
     Route: 042
     Dates: end: 20131105
  23. MYCOSTATIN [Concomitant]
     Active Substance: NYSTATIN
     Indication: MUCOSAL INFLAMMATION
     Dosage: TOTAL DAILY DOSE: 100,000 UI/ML FOUR TIMES A DAY.
     Route: 065
     Dates: start: 20131014
  24. ALENDRONATE [Concomitant]
     Active Substance: ALENDRONATE SODIUM
     Route: 065
  25. AMOXICILLIN/CLAVULANIC ACID [Concomitant]
     Active Substance: AMOXICILLIN\CLAVULANIC ACID
     Dosage: 2000 MG + 200 MG TID
     Route: 065
     Dates: start: 20131227, end: 20140106
  26. BROMAZEPAM [Concomitant]
     Active Substance: BROMAZEPAM
     Dosage: ID
     Route: 065
     Dates: start: 20140103
  27. AMOXICILLIN. [Concomitant]
     Active Substance: AMOXICILLIN
     Dosage: SOLE DOSE
     Route: 065
     Dates: start: 20140523, end: 20140523

REACTIONS (2)
  - Oesophageal candidiasis [Recovered/Resolved]
  - Oesophageal candidiasis [Recovered/Resolved]

NARRATIVE: CASE EVENT DATE: 20131003
